FAERS Safety Report 21562460 (Version 2)
Quarter: 2022Q4

REPORT INFORMATION
  Report Type: Report from Study
  Country: JP (occurrence: JP)
  Receive Date: 20221107
  Receipt Date: 20221117
  Transmission Date: 20230112
  Serious: Yes (Hospitalization)
  Sender: FDA-Public Use
  Company Number: JP-BRISTOL-MYERS SQUIBB COMPANY-2022-130333

PATIENT
  Age: 75 Year
  Sex: Female
  Weight: 52.9 kg

DRUGS (10)
  1. VONOPRAZAN FUMARATE [Concomitant]
     Active Substance: VONOPRAZAN FUMARATE
     Indication: Prophylaxis
     Route: 048
     Dates: start: 20220525
  2. VORICONAZOLE [Concomitant]
     Active Substance: VORICONAZOLE
     Indication: Prophylaxis
     Route: 048
     Dates: start: 20220928, end: 20221020
  3. LOXOPROFEN SODIUM DIHYDRATE [Concomitant]
     Active Substance: LOXOPROFEN SODIUM DIHYDRATE
     Indication: Prophylaxis
     Dosage: FREQUENCY: PRN
     Route: 062
     Dates: start: 20220924
  4. MUPIROCIN CALCIUM HYDRATE [Concomitant]
     Indication: Nasal congestion
     Route: 045
     Dates: start: 20221004, end: 20221014
  5. CEFEPIME [Concomitant]
     Active Substance: CEFEPIME HYDROCHLORIDE
     Indication: Febrile neutropenia
     Route: 042
     Dates: start: 20221004, end: 20221016
  6. DICLOFENAC SODIUM [Concomitant]
     Active Substance: DICLOFENAC SODIUM
     Indication: Cataract
     Route: 047
     Dates: start: 20220509
  7. URSODIOL [Concomitant]
     Active Substance: URSODIOL
     Indication: Gamma-glutamyltransferase increased
     Route: 048
     Dates: start: 20221021, end: 20221102
  8. GRANISETRON HYDROCHLORIDE [Concomitant]
     Active Substance: GRANISETRON HYDROCHLORIDE
     Indication: Prophylaxis
     Route: 048
     Dates: start: 20221024
  9. BROTIZOLAM [Concomitant]
     Active Substance: BROTIZOLAM
     Indication: Insomnia
     Route: 048
     Dates: start: 20220528
  10. MONOAMMONIUM GLYCYRRHIZINATE, GLYCINE, AMINOACETIC ACID, L-CYSTEINE HY [Concomitant]
     Indication: Gamma-glutamyltransferase increased
     Route: 042
     Dates: start: 20201022, end: 20221020

REACTIONS (1)
  - Vertigo [Not Recovered/Not Resolved]

NARRATIVE: CASE EVENT DATE: 20221026
